FAERS Safety Report 10446334 (Version 1)
Quarter: 2014Q3

REPORT INFORMATION
  Report Type: Spontaneous
  Country: CN (occurrence: CN)
  Receive Date: 20140911
  Receipt Date: 20140911
  Transmission Date: 20150326
  Serious: Yes (Hospitalization, Disabling)
  Sender: FDA-Public Use
  Company Number: CN-ROCHE-1459804

PATIENT
  Age: 51 Year
  Sex: Male
  Weight: 74 kg

DRUGS (2)
  1. HYDROXYCHLOROQUINE SULFATE. [Concomitant]
     Active Substance: HYDROXYCHLOROQUINE SULFATE
     Indication: AUTOIMMUNE DISORDER
     Route: 048
     Dates: start: 20140105, end: 20140208
  2. MABTHERA [Suspect]
     Active Substance: RITUXIMAB
     Indication: AUTOIMMUNE DISORDER
     Route: 041
     Dates: start: 20140110, end: 20140110

REACTIONS (4)
  - Feeling cold [Recovering/Resolving]
  - Temperature intolerance [Recovering/Resolving]
  - Interstitial lung disease [Recovering/Resolving]
  - Lung infection [Recovering/Resolving]

NARRATIVE: CASE EVENT DATE: 20140110
